FAERS Safety Report 25475393 (Version 1)
Quarter: 2025Q2

REPORT INFORMATION
  Report Type: Spontaneous
  Country: US (occurrence: US)
  Receive Date: 20250624
  Receipt Date: 20250624
  Transmission Date: 20250716
  Serious: Yes (Other)
  Sender: PFIZER
  Company Number: US-PFIZER INC-PV202500074714

PATIENT
  Age: 47 Year
  Sex: Female

DRUGS (1)
  1. IBRANCE [Suspect]
     Active Substance: PALBOCICLIB
     Indication: Breast cancer metastatic
     Dates: start: 202102, end: 202208

REACTIONS (3)
  - Breast cancer metastatic [Recovered/Resolved]
  - Malignant neoplasm progression [Recovered/Resolved]
  - Neutropenia [Recovered/Resolved]
